FAERS Safety Report 9334294 (Version 3)
Quarter: 2014Q2

REPORT INFORMATION
  Report Type: Spontaneous
  Country: US (occurrence: US)
  Receive Date: 20130606
  Receipt Date: 20140519
  Transmission Date: 20141212
  Serious: No
  Sender: FDA-Public Use
  Company Number: US-AMGEN-USASP2013008988

PATIENT
  Age: 86 Year
  Sex: Female

DRUGS (4)
  1. PROLIA [Suspect]
     Indication: OSTEOPOROSIS POSTMENOPAUSAL
     Dosage: UNK
     Route: 065
  2. B12                                /00056201/ [Concomitant]
     Route: 065
  3. VITAMINS                           /00067501/ [Concomitant]
     Route: 065
  4. CALCIUM [Concomitant]
     Route: 065

REACTIONS (8)
  - Oral pain [Unknown]
  - Gingival pain [Unknown]
  - Memory impairment [Unknown]
  - Vitamin B12 decreased [Unknown]
  - Fall [Recovered/Resolved]
  - Spinal pain [Unknown]
  - Back pain [Unknown]
  - Pain [Unknown]
